FAERS Safety Report 20516782 (Version 1)
Quarter: 2022Q1

REPORT INFORMATION
  Report Type: Spontaneous
  Country: US (occurrence: US)
  Receive Date: 20220225
  Receipt Date: 20220225
  Transmission Date: 20220424
  Serious: No
  Sender: FDA-Public Use
  Company Number: US-JNJFOC-20220234190

PATIENT
  Sex: Male

DRUGS (3)
  1. INVEGA HAFYERA [Suspect]
     Active Substance: PALIPERIDONE PALMITATE
     Indication: Product used for unknown indication
     Route: 030
  2. INVEGA HAFYERA [Suspect]
     Active Substance: PALIPERIDONE PALMITATE
  3. HALOPERIDOL DECANOATE [Concomitant]
     Active Substance: HALOPERIDOL DECANOATE
     Indication: Product used for unknown indication
     Route: 065

REACTIONS (5)
  - Akathisia [Unknown]
  - Agitation [Unknown]
  - Energy increased [Unknown]
  - Posture abnormal [Unknown]
  - Hyperaesthesia [Unknown]
